FAERS Safety Report 8179669-4 (Version None)
Quarter: 2012Q1

REPORT INFORMATION
  Report Type: 
  Country: None (occurrence: None)
  Receive Date: 20120302
  Receipt Date: 20120221
  Transmission Date: 20120608
  Serious: Yes (Other)
  Sender: FDA-Public Use
  Company Number: US-SANOFI-AVENTIS-2012SA012439

PATIENT
  Sex: Male

DRUGS (1)
  1. BENZACLIN [Suspect]
     Indication: ACNE
     Dates: start: 20070101

REACTIONS (1)
  - COLITIS ULCERATIVE [None]
